FAERS Safety Report 13592360 (Version 1)
Quarter: 2017Q2

REPORT INFORMATION
  Report Type: Spontaneous
  Country: RU (occurrence: RU)
  Receive Date: 20170530
  Receipt Date: 20170530
  Transmission Date: 20170830
  Serious: Yes (Hospitalization)
  Sender: FDA-Public Use
  Company Number: RU-ASTRAZENECA-2017SE56841

PATIENT
  Age: 80 Year
  Sex: Female
  Weight: 75 kg

DRUGS (6)
  1. BRILINTA [Suspect]
     Active Substance: TICAGRELOR
     Indication: MYOCARDIAL INFARCTION
     Route: 048
     Dates: start: 201607
  2. THROMBO ASS [Concomitant]
     Active Substance: ASPIRIN
  3. AMLODIPIN [Concomitant]
     Active Substance: AMLODIPINE BESYLATE
  4. CONCOR [Concomitant]
     Active Substance: BISOPROLOL FUMARATE
     Dosage: 5.0MG UNKNOWN
  5. ATORIS [Concomitant]
     Active Substance: ATORVASTATIN CALCIUM
     Dosage: 20.0MG UNKNOWN
  6. LOSAP [Concomitant]
     Dosage: 100.0MG UNKNOWN

REACTIONS (2)
  - Dyspepsia [Not Recovered/Not Resolved]
  - Chest pain [Recovering/Resolving]

NARRATIVE: CASE EVENT DATE: 201612
